FAERS Safety Report 5851890-7 (Version None)
Quarter: 2008Q3

REPORT INFORMATION
  Report Type: 
  Country: None (occurrence: None)
  Receive Date: 20080819
  Receipt Date: 20080806
  Transmission Date: 20090109
  Serious: Yes (Life-Threatening, Hospitalization)
  Sender: FDA-Public Use
  Company Number: 2008AL009513

PATIENT
  Age: 74 Year
  Sex: Male

DRUGS (4)
  1. FLUOXETINE [Suspect]
     Indication: DEPRESSION
  2. TEMAZEPAM [Suspect]
     Dosage: 10 MG;
     Dates: start: 20020424
  3. MIRTAZAPINE [Suspect]
     Dosage: 15 MG;
     Dates: start: 20020417, end: 20020424
  4. VALPROIC ACID [Concomitant]

REACTIONS (3)
  - MANIA [None]
  - SEDATION [None]
  - SUICIDE ATTEMPT [None]
